FAERS Safety Report 8009852-X (Version None)
Quarter: 2011Q4

REPORT INFORMATION
  Report Type: 
  Country: None (occurrence: None)
  Receive Date: 20111221
  Receipt Date: 20111205
  Transmission Date: 20120403
  Serious: Yes (Hospitalization)
  Sender: FDA-Public Use
  Company Number: 2011AP002853

PATIENT
  Age: 36 Year
  Sex: Male

DRUGS (5)
  1. INSULIN [Suspect]
     Indication: CARDIOGENIC SHOCK
     Dosage: IVDRP
     Route: 041
  2. CARVEDILOL [Suspect]
     Indication: PRODUCT USED FOR UNKNOWN INDICATION
  3. INSULIN [Suspect]
     Indication: CARDIOGENIC SHOCK
     Dosage: 70 IU;IVBOL
     Route: 040
  4. FUROSEMIDE [Suspect]
     Indication: PRODUCT USED FOR UNKNOWN INDICATION
  5. LISINOPRIL [Suspect]
     Indication: PRODUCT USED FOR UNKNOWN INDICATION

REACTIONS (4)
  - CARDIOGENIC SHOCK [None]
  - HYPOGLYCAEMIA [None]
  - HYPOKALAEMIA [None]
  - MULTIPLE DRUG OVERDOSE [None]
